FAERS Safety Report 7708906-2 (Version None)
Quarter: 2011Q3

REPORT INFORMATION
  Report Type: 
  Country: None (occurrence: None)
  Receive Date: 20110825
  Receipt Date: 20110819
  Transmission Date: 20111222
  Serious: Yes (Other)
  Sender: FDA-Public Use
  Company Number: ES-SANOFI-AVENTIS-2011SA053355

PATIENT
  Age: 94 Year
  Sex: Female

DRUGS (7)
  1. LACTULOSE [Concomitant]
     Route: 048
  2. SINTROM [Concomitant]
     Route: 048
  3. MIRTAZAPINE [Suspect]
     Route: 048
     Dates: start: 20100630
  4. AMARYL [Concomitant]
     Route: 048
  5. NOLOTIL [Concomitant]
     Route: 048
  6. BISOPROLOL FUMARATE [Concomitant]
     Route: 048
  7. ZOLPIDEM [Suspect]
     Indication: INSOMNIA
     Route: 048
     Dates: start: 20020510, end: 20110801

REACTIONS (2)
  - HEAD INJURY [None]
  - FALL [None]
